FAERS Safety Report 24801625 (Version 4)
Quarter: 2025Q2

REPORT INFORMATION
  Report Type: Spontaneous
  Country: US (occurrence: US)
  Receive Date: 20250102
  Receipt Date: 20250521
  Transmission Date: 20250717
  Serious: Yes (Other)
  Sender: PFIZER
  Company Number: US-PFIZER INC-202400334642

PATIENT
  Age: 76 Year
  Sex: Female

DRUGS (3)
  1. TUKYSA [Suspect]
     Active Substance: TUCATINIB
     Dosage: 300 MG, 2X/DAY (TAKE TWO 150MG TABLETS TWICE DAILY)
     Route: 048
  2. TUKYSA [Suspect]
     Active Substance: TUCATINIB
     Dosage: 150 MG, 2X/DAY  (TAKE TWO 150MG TABLETS TWICE DAILY)
     Route: 048
  3. TUKYSA [Suspect]
     Active Substance: TUCATINIB
     Dosage: 150 MG, 2X/DAY

REACTIONS (2)
  - Malignant neoplasm progression [Unknown]
  - Pancreatitis [Unknown]
